FAERS Safety Report 4845579-0 (Version None)
Quarter: 2005Q4

REPORT INFORMATION
  Report Type: 
  Country: None (occurrence: None)
  Receive Date: 20051205
  Receipt Date: 20050412
  Transmission Date: 20060501
  Serious: Yes (Hospitalization)
  Sender: FDA-Public Use
  Company Number: US-MERCK-0504USA01855

PATIENT
  Age: 60 Year
  Sex: Female
  Weight: 132 kg

DRUGS (1)
  1. VIOXX [Suspect]
     Indication: PAIN IN EXTREMITY
     Route: 048
     Dates: start: 20040101, end: 20040901

REACTIONS (8)
  - ANGINA PECTORIS [None]
  - CARPAL TUNNEL SYNDROME [None]
  - DEPRESSION [None]
  - LACUNAR INFARCTION [None]
  - LUMBAR RADICULOPATHY [None]
  - PAIN [None]
  - PAIN IN EXTREMITY [None]
  - POLYARTHRITIS [None]
